FAERS Safety Report 16465731 (Version 1)
Quarter: 2019Q2

REPORT INFORMATION
  Report Type: Spontaneous
  Country: AR (occurrence: AR)
  Receive Date: 20190621
  Receipt Date: 20190621
  Transmission Date: 20190711
  Serious: Yes (Hospitalization, Other)
  Sender: FDA-Public Use
  Company Number: AR-ASTRAZENECA-2019SE87981

PATIENT
  Age: 57 Year
  Sex: Male
  Weight: 83 kg

DRUGS (2)
  1. CANDESARTAN. [Concomitant]
     Active Substance: CANDESARTAN
     Indication: HYPERTENSION
  2. FORXIGA [Suspect]
     Active Substance: DAPAGLIFLOZIN
     Indication: DIABETES MELLITUS
     Route: 048
     Dates: start: 201806, end: 201905

REACTIONS (4)
  - Pancreatic neoplasm [Recovered/Resolved]
  - Hypophagia [Unknown]
  - Weight decreased [Unknown]
  - Pancreatitis [Recovered/Resolved]

NARRATIVE: CASE EVENT DATE: 201810
